FAERS Safety Report 10529485 (Version 2)
Quarter: 2015Q1

REPORT INFORMATION
  Report Type: Spontaneous
  Country: US (occurrence: US)
  Receive Date: 20141021
  Receipt Date: 20150119
  Transmission Date: 20150720
  Serious: Yes (Death, Hospitalization)
  Sender: FDA-Public Use
  Company Number: US-UNITED THERAPEUTICS-UNT-2014-009320

PATIENT
  Sex: Female

DRUGS (1)
  1. REMODULIN [Suspect]
     Active Substance: TREPROSTINIL
     Indication: PULMONARY ARTERIAL HYPERTENSION
     Dosage: 2.6 ML, CONTINUING
     Route: 058
     Dates: start: 20111123

REACTIONS (3)
  - Death [Fatal]
  - Dyspnoea [Unknown]
  - Mass [Unknown]

NARRATIVE: CASE EVENT DATE: 2014
